FAERS Safety Report 4931402-2 (Version None)
Quarter: 2006Q1

REPORT INFORMATION
  Report Type: 
  Country: None (occurrence: None)
  Receive Date: 20060303
  Receipt Date: 20060227
  Transmission Date: 20060701
  Serious: Yes (Life-Threatening, Hospitalization)
  Sender: FDA-Public Use
  Company Number: PHFR2006GB00966

PATIENT
  Age: 81 Year
  Sex: Male
  Weight: 101.6 kg

DRUGS (7)
  1. WARFARIN [Concomitant]
     Dosage: 5 MG/DAY
     Route: 065
     Dates: start: 20040601, end: 20060201
  2. FRUSEMIDE [Concomitant]
     Indication: CARDIAC FAILURE
     Dosage: 40 MG/DAY
     Route: 065
  3. SPIRONOLACTONE [Concomitant]
     Indication: CARDIAC FAILURE
     Dosage: 25 MG/DAY
     Route: 065
     Dates: start: 20040601, end: 20060201
  4. CANDESARTAN [Concomitant]
     Indication: CARDIAC FAILURE
     Dosage: 8 MG, BID
     Route: 065
     Dates: start: 20040601, end: 20060201
  5. ASPIRIN [Concomitant]
     Dosage: 75 MG/DAY
     Route: 065
     Dates: end: 20060201
  6. LISINOPRIL [Concomitant]
     Dosage: 20 MG/DAY
     Route: 065
  7. GLEEVEC [Suspect]
     Indication: CHRONIC MYELOID LEUKAEMIA
     Dosage: 400 MG/DAY
     Route: 048
     Dates: start: 20030701, end: 20060201

REACTIONS (2)
  - APLASIA PURE RED CELL [None]
  - RENAL FAILURE CHRONIC [None]
